FAERS Safety Report 8066698-4 (Version None)
Quarter: 2011Q4

REPORT INFORMATION
  Report Type: 
  Country: None (occurrence: None)
  Receive Date: 20111221
  Receipt Date: 20110811
  Transmission Date: 20120403
  Serious: Yes (Other)
  Sender: FDA-Public Use
  Company Number: PHHY2010US84193

PATIENT
  Age: 71 Year
  Sex: Female

DRUGS (15)
  1. VITAMIN D [Concomitant]
  2. MIRALAX [Concomitant]
  3. EXJADE [Suspect]
     Indication: MYELODYSPLASTIC SYNDROME
     Dosage: 500 MG, TID, ORAL
     Route: 048
     Dates: start: 20101207, end: 20110110
  4. CRESTOR [Concomitant]
  5. MULTIVITAMIN [Concomitant]
  6. CALCIUM CARBONATE [Concomitant]
  7. SYNTHROID [Concomitant]
  8. ASPIRIN [Concomitant]
  9. ATIVAN [Concomitant]
  10. AVAPRO [Concomitant]
  11. CLARITIN [Concomitant]
  12. PRILOSEC [Concomitant]
  13. COMPAZINE [Concomitant]
  14. TRIAMTERENE AND HYDROCHLOROTHIAZID (HYDROCHLOROTHIAZIDE, TRIAMTERENE) [Concomitant]
  15. ASCORBIC ACID [Concomitant]

REACTIONS (13)
  - HAEMOGLOBIN DECREASED [None]
  - DRUG INTOLERANCE [None]
  - DYSPEPSIA [None]
  - DYSGEUSIA [None]
  - DIARRHOEA [None]
  - BLOOD UREA INCREASED [None]
  - SERUM FERRITIN INCREASED [None]
  - RED BLOOD CELL COUNT INCREASED [None]
  - BLOOD GLUCOSE INCREASED [None]
  - GLOMERULAR FILTRATION RATE DECREASED [None]
  - BLOOD CREATININE INCREASED [None]
  - BLOOD CREATININE DECREASED [None]
  - MUSCULOSKELETAL PAIN [None]
